FAERS Safety Report 20268365 (Version 1)
Quarter: 2021Q4

REPORT INFORMATION
  Report Type: Other
  Country: US (occurrence: None)
  Receive Date: 20211231
  Receipt Date: 20211231
  Transmission Date: 20220303
  Serious: Yes (Other)
  Sender: FDA-Public Use
  Company Number: US-ROCHE-2678762

PATIENT
  Sex: Male

DRUGS (1)
  1. XELODA [Suspect]
     Active Substance: CAPECITABINE
     Indication: Oesophageal carcinoma
     Dosage: TAKE 4 TABLET(S) BY MOUTH TWICE A DAY FOR 2 WEEKS ON  THEN 1 WEEK OFF THEN REPEAT
     Route: 048

REACTIONS (5)
  - Abdominal discomfort [Unknown]
  - Paraesthesia [Unknown]
  - Off label use [Unknown]
  - Upper limb fracture [Unknown]
  - Gastric disorder [Unknown]
